FAERS Safety Report 9126845 (Version 2)
Quarter: 2013Q1

REPORT INFORMATION
  Report Type: Spontaneous
  Country: US (occurrence: US)
  Receive Date: 20130122
  Receipt Date: 20130322
  Transmission Date: 20140127
  Serious: No
  Sender: FDA-Public Use
  Company Number: US-PFIZER INC-2013024511

PATIENT
  Age: 58 Year
  Sex: Female
  Weight: 61.68 kg

DRUGS (2)
  1. PREMPRO [Suspect]
     Indication: HOT FLUSH
     Dosage: 0.3 MG, 1X/DAY
     Dates: start: 201103
  2. CAMPTOSAR [Concomitant]
     Indication: PANCREATIC CARCINOMA
     Dosage: 280 MG, WEEKLY

REACTIONS (1)
  - Drug ineffective [Not Recovered/Not Resolved]
